FAERS Safety Report 16903607 (Version 2)
Quarter: 2019Q4

REPORT INFORMATION
  Report Type: Spontaneous
  Country: DE (occurrence: DE)
  Receive Date: 20191010
  Receipt Date: 20191017
  Transmission Date: 20200122
  Serious: Yes (Other)
  Sender: FDA-Public Use
  Company Number: DE-FERRINGPH-2019FE06404

PATIENT

DRUGS (2)
  1. DEKRISTOL [Concomitant]
     Active Substance: CHOLECALCIFEROL
     Indication: OSTEOPENIA
     Dosage: UNK
     Route: 048
  2. CRH [CORTICORELIN] [Suspect]
     Active Substance: CORTICORELIN
     Indication: CORTICOTROPIN-RELEASING HORMONE STIMULATION TEST
     Dosage: 100 ?G, ONCE/SINGLE IN TOTAL
     Route: 042
     Dates: start: 20190823

REACTIONS (2)
  - Bradycardia [Recovered/Resolved]
  - Syncope [Recovered/Resolved]

NARRATIVE: CASE EVENT DATE: 20190823
